FAERS Safety Report 22192228 (Version 5)
Quarter: 2023Q2

REPORT INFORMATION
  Report Type: Spontaneous
  Country: US (occurrence: US)
  Receive Date: 20230410
  Receipt Date: 20230606
  Transmission Date: 20230721
  Serious: Yes (Other)
  Sender: FDA-Public Use
  Company Number: US-PFIZER INC-PV202300064709

PATIENT
  Age: 57 Year
  Sex: Female

DRUGS (2)
  1. IBRANCE [Suspect]
     Active Substance: PALBOCICLIB
     Dosage: 125 MG
  2. IBRANCE [Suspect]
     Active Substance: PALBOCICLIB
     Dosage: 100 MG, CYCLIC (1 TAB DAILY FOR 21 DAYS ON AND 7 DAYS OFF #21)

REACTIONS (5)
  - White blood cell count decreased [Unknown]
  - Red blood cell count decreased [Unknown]
  - Fatigue [Unknown]
  - Malaise [Unknown]
  - Somnolence [Unknown]
